FAERS Safety Report 12204118 (Version 1)
Quarter: 2016Q1

REPORT INFORMATION
  Report Type: Spontaneous
  Country: US (occurrence: None)
  Receive Date: 20160322
  Receipt Date: 20160322
  Transmission Date: 20160526
  Serious: Yes (Other)
  Sender: FDA-Public Use
  Company Number: None

PATIENT
  Age: 64 Year
  Sex: Male
  Weight: 81.19 kg

DRUGS (1)
  1. REVATIO [Suspect]
     Active Substance: SILDENAFIL CITRATE
     Indication: PRODUCT USED FOR UNKNOWN INDICATION
     Dosage: 1 20 MG TAB T.I.D. PRN ORAL
     Route: 048
     Dates: end: 20130101

REACTIONS (5)
  - Erythema [None]
  - Abdominal discomfort [None]
  - Headache [None]
  - Feeling hot [None]
  - Epistaxis [None]

NARRATIVE: CASE EVENT DATE: 20130101
